FAERS Safety Report 24814719 (Version 1)
Quarter: 2025Q1

REPORT INFORMATION
  Report Type: Spontaneous
  Country: PT (occurrence: PT)
  Receive Date: 20250107
  Receipt Date: 20250107
  Transmission Date: 20250409
  Serious: Yes (Other)
  Sender: NOVA LABORATORIES LIMITED
  Company Number: PT-Nova Laboratories Limited-2168519

PATIENT
  Age: 17 Year

DRUGS (5)
  1. PURIXAN [Suspect]
     Active Substance: MERCAPTOPURINE
     Indication: Crohn^s disease
  2. REMICADE [Suspect]
     Active Substance: INFLIXIMAB
  3. MERCAPTOPURINE [Suspect]
     Active Substance: MERCAPTOPURINE
  4. PREDNISONE [Suspect]
     Active Substance: PREDNISONE
  5. REMICADE [Suspect]
     Active Substance: INFLIXIMAB

REACTIONS (2)
  - Histoplasmosis [Unknown]
  - Off label use [Unknown]
